FAERS Safety Report 5237272-X (Version None)
Quarter: 2007Q1

REPORT INFORMATION
  Report Type: 
  Country: None (occurrence: None)
  Receive Date: 20070213
  Receipt Date: 20070202
  Transmission Date: 20070707
  Serious: Yes (Other)
  Sender: FDA-Public Use
  Company Number: 2007PK00212

PATIENT
  Age: 698 Month
  Sex: Female
  Weight: 65 kg

DRUGS (2)
  1. ARIMIDEX [Suspect]
     Indication: BREAST CANCER FEMALE
     Route: 048
     Dates: start: 20050701
  2. FEMARA [Suspect]
     Indication: BREAST CANCER FEMALE
     Dates: start: 20050701

REACTIONS (6)
  - AGEUSIA [None]
  - ANAL FISTULA [None]
  - IMPAIRED HEALING [None]
  - MUCOSAL DRYNESS [None]
  - PAROSMIA [None]
  - STOMATITIS [None]
